FAERS Safety Report 7427597-1 (Version None)
Quarter: 2011Q2

REPORT INFORMATION
  Report Type: 
  Country: None (occurrence: None)
  Receive Date: 20110420
  Receipt Date: 20110407
  Transmission Date: 20111010
  Serious: Yes (Other)
  Sender: FDA-Public Use
  Company Number: US-MYLANLABS-2011S1007500

PATIENT
  Age: 3 Year
  Sex: Male

DRUGS (3)
  1. LAMOTRIGINE [Suspect]
     Dosage: 7.8 MG/KG/DAY
     Route: 065
  2. CLONAZEPAM [Concomitant]
     Route: 065
  3. LAMOTRIGINE [Suspect]
     Indication: GRAND MAL CONVULSION
     Dosage: 2 MG/KG/DAY
     Route: 065

REACTIONS (2)
  - HEMIPARESIS [None]
  - OCULOGYRIC CRISIS [None]
